FAERS Safety Report 23325201 (Version 8)
Quarter: 2025Q1

REPORT INFORMATION
  Report Type: Report from Study
  Country: CA (occurrence: CA)
  Receive Date: 20231221
  Receipt Date: 20250222
  Transmission Date: 20250408
  Serious: Yes (Hospitalization)
  Sender: CHIESI
  Company Number: CA-CHIESI-2023CHF06798

PATIENT
  Age: 64 Year
  Sex: Female
  Weight: 45.7 kg

DRUGS (4)
  1. DEFERIPRONE [Suspect]
     Active Substance: DEFERIPRONE
     Indication: Anaemia
     Dosage: 2500 MILLIGRAM, QD
     Route: 048
     Dates: start: 20210811
  2. DEFERIPRONE [Suspect]
     Active Substance: DEFERIPRONE
     Indication: Off label use
  3. DEFERIPRONE [Suspect]
     Active Substance: DEFERIPRONE
     Indication: Heart transplant
  4. TACROLIMUS [Concomitant]
     Active Substance: TACROLIMUS
     Indication: Prophylaxis against transplant rejection

REACTIONS (16)
  - Ill-defined disorder [Recovered/Resolved]
  - Escherichia urinary tract infection [Unknown]
  - Glomerular filtration rate decreased [Unknown]
  - Ill-defined disorder [Unknown]
  - Posterior reversible encephalopathy syndrome [Unknown]
  - Meningitis [Unknown]
  - Loss of consciousness [Unknown]
  - Renal impairment [Unknown]
  - Renal disorder [Unknown]
  - Seizure [Unknown]
  - Dehydration [Unknown]
  - Pneumonia [Unknown]
  - Hypotension [Unknown]
  - Sedation [Unknown]
  - Off label use [Recovered/Resolved]
  - Off label use [Recovered/Resolved]

NARRATIVE: CASE EVENT DATE: 20210811
